FAERS Safety Report 21807790 (Version 1)
Quarter: 2023Q1

REPORT INFORMATION
  Report Type: Spontaneous
  Country: US (occurrence: US)
  Receive Date: 20230103
  Receipt Date: 20230103
  Transmission Date: 20230417
  Serious: No
  Sender: FDA-Public Use
  Company Number: US-BRISTOL-MYERS SQUIBB COMPANY-2022-160581

PATIENT
  Age: 83 Year
  Sex: Female

DRUGS (1)
  1. SPRYCEL [Suspect]
     Active Substance: DASATINIB
     Indication: Chronic leukaemia
     Dosage: FREQUENCY: 70 MG 1 DAILY FOR 2 DAYS ON, THEN 1 DAY OFF
     Route: 048
     Dates: start: 20140710

REACTIONS (2)
  - Full blood count decreased [Unknown]
  - Off label use [Unknown]
